FAERS Safety Report 4931298-9 (Version None)
Quarter: 2006Q1

REPORT INFORMATION
  Report Type: 
  Country: None (occurrence: None)
  Receive Date: 20060302
  Receipt Date: 20030605
  Transmission Date: 20060701
  Serious: Yes (Hospitalization, Disabling)
  Sender: FDA-Public Use
  Company Number: US-MERCK-0306USA00899

PATIENT
  Age: 53 Year
  Sex: Female
  Weight: 109 kg

DRUGS (5)
  1. VIOXX [Suspect]
     Indication: ARTHRALGIA
     Route: 048
     Dates: start: 19991222, end: 20040930
  2. ATENOLOL [Concomitant]
     Route: 065
  3. MAXZIDE [Concomitant]
     Route: 065
  4. CLONIDINE [Concomitant]
     Route: 065
  5. AMBIEN [Concomitant]
     Route: 065

REACTIONS (23)
  - ADVERSE EVENT [None]
  - AMNESIA [None]
  - CEREBROVASCULAR ACCIDENT [None]
  - CHEST PAIN [None]
  - COUGH [None]
  - DRUG INTOLERANCE [None]
  - DYSPEPSIA [None]
  - DYSURIA [None]
  - FIBROSIS [None]
  - HYPERGLYCAEMIA [None]
  - INFECTION [None]
  - NAUSEA [None]
  - OEDEMA PERIPHERAL [None]
  - OSTEOARTHRITIS [None]
  - PALPITATIONS [None]
  - PERIARTHRITIS [None]
  - PHARYNGEAL OEDEMA [None]
  - PHARYNGOLARYNGEAL PAIN [None]
  - THIRST [None]
  - TINNITUS [None]
  - TOOTHACHE [None]
  - VOMITING [None]
  - WEIGHT ABNORMAL [None]
